FAERS Safety Report 7087692-6 (Version None)
Quarter: 2010Q4

REPORT INFORMATION
  Report Type: 
  Country: None (occurrence: None)
  Receive Date: 20101108
  Receipt Date: 20101028
  Transmission Date: 20110411
  Serious: No
  Sender: FDA-Public Use
  Company Number: US-BIOGENIDEC-2010BI038457

PATIENT
  Age: 66 Year
  Sex: Female

DRUGS (2)
  1. TYSABRI [Suspect]
     Indication: MULTIPLE SCLEROSIS
     Route: 042
     Dates: start: 20071207, end: 20080725
  2. TYSABRI [Suspect]
     Route: 042
     Dates: start: 20100609

REACTIONS (4)
  - COORDINATION ABNORMAL [None]
  - FATIGUE [None]
  - GAIT DISTURBANCE [None]
  - PAIN IN EXTREMITY [None]
